FAERS Safety Report 15186111 (Version 2)
Quarter: 2019Q1

REPORT INFORMATION
  Report Type: Report from Study
  Country: US (occurrence: US)
  Receive Date: 20180723
  Receipt Date: 20190130
  Transmission Date: 20190417
  Serious: No
  Sender: FDA-Public Use
  Company Number: US-EXELIXIS-CABO-18013067

PATIENT
  Sex: Male

DRUGS (2)
  1. CABOMETYX [Suspect]
     Active Substance: CABOZANTINIB S-MALATE
     Indication: PRODUCT USED FOR UNKNOWN INDICATION
     Dosage: UNK
  2. CABOMETYX [Suspect]
     Active Substance: CABOZANTINIB S-MALATE
     Dosage: 40 MG, QD (6 MONTHS)
     Route: 048

REACTIONS (6)
  - Oropharyngeal pain [Unknown]
  - Fatigue [Unknown]
  - Oral pain [Not Recovered/Not Resolved]
  - Hyperkeratosis [Unknown]
  - Dry skin [Unknown]
  - Skin exfoliation [Unknown]
